FAERS Safety Report 5035903-0 (Version None)
Quarter: 2006Q2

REPORT INFORMATION
  Report Type: 
  Country: None (occurrence: None)
  Receive Date: 20060526
  Receipt Date: 20060228
  Transmission Date: 20061013
  Serious: Yes (Other)
  Sender: FDA-Public Use
  Company Number: WAES 0603USA01437

PATIENT
  Sex: Female

DRUGS (2)
  1. VYTORIN [Suspect]
     Indication: LOW DENSITY LIPOPROTEIN
     Dosage: 10-20 MG/DAILY/PO
     Route: 048
  2. CYMBALTA [Concomitant]

REACTIONS (1)
  - HEPATIC ENZYME INCREASED [None]
